FAERS Safety Report 6074032-4 (Version None)
Quarter: 2009Q1

REPORT INFORMATION
  Report Type: 
  Country: None (occurrence: None)
  Receive Date: 20090211
  Receipt Date: 20090205
  Transmission Date: 20090719
  Serious: Yes (Hospitalization, Congenital Anomaly)
  Sender: FDA-Public Use
  Company Number: A0680933A

PATIENT
  Sex: Male
  Weight: 2 kg

DRUGS (7)
  1. PAXIL [Suspect]
     Indication: DEPRESSION
     Dosage: 20MG TWICE PER DAY
     Dates: start: 19980831, end: 19990426
  2. VITAMIN TAB [Concomitant]
  3. LORAZEPAM [Concomitant]
  4. PREDNISONE [Concomitant]
  5. HYDROCORTISONE [Concomitant]
  6. BENADRYL [Concomitant]
  7. PROCARDIA [Concomitant]

REACTIONS (4)
  - CARDIAC FAILURE [None]
  - DRUG EXPOSURE DURING PREGNANCY [None]
  - EBSTEIN'S ANOMALY [None]
  - PATENT DUCTUS ARTERIOSUS [None]
